FAERS Safety Report 7610767-7 (Version None)
Quarter: 2011Q3

REPORT INFORMATION
  Report Type: 
  Country: None (occurrence: None)
  Receive Date: 20110707
  Receipt Date: 20110622
  Transmission Date: 20111222
  Serious: Yes (Hospitalization, Disabling)
  Sender: FDA-Public Use
  Company Number: 2011MA007927

PATIENT
  Age: 56 Year
  Sex: Male

DRUGS (2)
  1. HALOPERIDOL LACTATE [Suspect]
     Indication: SCHIZOPHRENIA
     Dosage: 100 MG; QM; IM
     Route: 030
  2. VALPROATE SODIUM [Concomitant]

REACTIONS (10)
  - HALLUCINATION [None]
  - CONVULSION [None]
  - AGGRESSION [None]
  - MUSCULAR WEAKNESS [None]
  - DYSTONIA [None]
  - JOINT DISLOCATION [None]
  - PNEUMONIA ASPIRATION [None]
  - ARTHROPATHY [None]
  - CEREBRAL ATROPHY [None]
  - DYSKINESIA [None]
